FAERS Safety Report 9714532 (Version 1)
Quarter: 2013Q4

REPORT INFORMATION
  Report Type: Spontaneous
  Country: FR (occurrence: FR)
  Receive Date: 20131126
  Receipt Date: 20131126
  Transmission Date: 20140711
  Serious: Yes (Hospitalization)
  Sender: FDA-Public Use
  Company Number: FR-AMGEN-FRASP2013082366

PATIENT
  Age: 77 Year
  Sex: Female

DRUGS (11)
  1. NEULASTA [Suspect]
     Indication: NEUTROPENIA
     Dosage: 6 MG, ONE TIME DOSE
     Route: 065
     Dates: start: 20121113, end: 20121113
  2. HUMALOG MIX [Concomitant]
     Dosage: UNK
  3. NOVORAPID [Concomitant]
     Dosage: UNK
  4. TEMERIT [Concomitant]
     Dosage: UNK
  5. COVERAM [Concomitant]
     Dosage: UNK
  6. EFUDEX [Concomitant]
     Dosage: UNK
  7. DIFFU K [Concomitant]
     Dosage: UNK
  8. INEXIUM                            /01479303/ [Concomitant]
     Dosage: UNK
  9. GRANOCYTE [Concomitant]
     Dosage: UNK
  10. CHEMOTHERAPEUTICS [Concomitant]
     Indication: METASTASES TO PANCREAS
     Dosage: UNK
  11. CHEMOTHERAPEUTICS [Concomitant]
     Indication: METASTASES TO LUNG

REACTIONS (1)
  - Influenza [Recovered/Resolved]
